FAERS Safety Report 12765046 (Version 4)
Quarter: 2017Q1

REPORT INFORMATION
  Report Type: Report from Study
  Country: JP (occurrence: JP)
  Receive Date: 20160921
  Receipt Date: 20170309
  Transmission Date: 20170428
  Serious: Yes (Hospitalization)
  Sender: FDA-Public Use
  Company Number: JP-ACTELION-A-CH2016-141389

PATIENT
  Age: 60 Year
  Sex: Male
  Weight: 68 kg

DRUGS (66)
  1. SELEXIPAG [Suspect]
     Active Substance: SELEXIPAG
     Indication: PULMONARY ARTERIAL HYPERTENSION
     Dosage: 1200 ?G, BID
     Route: 048
     Dates: start: 20151016, end: 20170126
  2. SELEXIPAG [Suspect]
     Active Substance: SELEXIPAG
     Dosage: 800 ?G, BID
     Route: 048
     Dates: start: 20120615, end: 20120618
  3. SELEXIPAG [Suspect]
     Active Substance: SELEXIPAG
     Dosage: 1600 ?G, BID
     Route: 048
     Dates: start: 20120710, end: 20121109
  4. SELEXIPAG [Suspect]
     Active Substance: SELEXIPAG
     Dosage: 1200 ?G, BID
     Route: 048
     Dates: start: 20131209, end: 20131215
  5. SELEXIPAG [Suspect]
     Active Substance: SELEXIPAG
     Dosage: 1400 ?G, BID
     Route: 048
     Dates: start: 20140714, end: 20140721
  6. VONOPRAZAN FUMARATE [Concomitant]
     Active Substance: VONOPRAZAN FUMURATE
     Dosage: UNK
     Dates: start: 20160715
  7. TRAPIDIL [Concomitant]
     Active Substance: TRAPIDIL
     Dosage: UNK
     Dates: start: 20120921
  8. KETOPROFEN. [Concomitant]
     Active Substance: KETOPROFEN
  9. CARBAZOCHROME SODIUM SULFONATE TRIHYDRATE [Concomitant]
     Dosage: UNK
     Dates: start: 20161110
  10. SELEXIPAG [Suspect]
     Active Substance: SELEXIPAG
     Dosage: 1000 ?G, BID
     Route: 048
     Dates: start: 20120619, end: 20120625
  11. SELEXIPAG [Suspect]
     Active Substance: SELEXIPAG
     Dosage: 1200 ?G, BID
     Route: 048
     Dates: start: 20120626, end: 20120702
  12. SELEXIPAG [Suspect]
     Active Substance: SELEXIPAG
     Dosage: 1000 ?G, BID
     Route: 048
     Dates: start: 20121109, end: 20121118
  13. SELEXIPAG [Suspect]
     Active Substance: SELEXIPAG
     Dosage: 1000 ?G, BID
     Route: 048
     Dates: start: 20121121, end: 20131208
  14. SELEXIPAG [Suspect]
     Active Substance: SELEXIPAG
     Dosage: 1400 ?G, BID
     Route: 048
     Dates: start: 20131216, end: 20131220
  15. SELEXIPAG [Suspect]
     Active Substance: SELEXIPAG
     Dosage: 1200 ?G, BID
     Route: 048
     Dates: start: 20131220, end: 20131224
  16. SELEXIPAG [Suspect]
     Active Substance: SELEXIPAG
     Dosage: 1200 ?G, BID
     Route: 048
     Dates: start: 20131227, end: 20140713
  17. ALOGLIPTIN BENZOATE [Concomitant]
     Active Substance: ALOGLIPTIN BENZOATE
     Dosage: UNK
     Dates: start: 20140712
  18. AZOSEMIDE [Concomitant]
     Active Substance: AZOSEMIDE
  19. ACETAMINOPHEN. [Concomitant]
     Active Substance: ACETAMINOPHEN
     Dosage: UNK
     Dates: start: 20161110
  20. SELEXIPAG [Suspect]
     Active Substance: SELEXIPAG
     Indication: PULMONARY ARTERIAL HYPERTENSION
     Dosage: 1200 ?G, BID
     Route: 048
     Dates: start: 20151016, end: 20170126
  21. SELEXIPAG [Suspect]
     Active Substance: SELEXIPAG
     Dosage: 200 ?G, BID
     Route: 048
     Dates: start: 20120605, end: 20120607
  22. SELEXIPAG [Suspect]
     Active Substance: SELEXIPAG
     Dosage: 1200 ?G, BID
     Route: 048
     Dates: start: 20121119, end: 20121121
  23. SELEXIPAG [Suspect]
     Active Substance: SELEXIPAG
     Dosage: 1200 ?G, BID
     Route: 048
     Dates: start: 20131227, end: 20140713
  24. NIFEDIPINE. [Suspect]
     Active Substance: NIFEDIPINE
     Indication: PRODUCT USED FOR UNKNOWN INDICATION
     Dosage: UNK
     Route: 048
     Dates: start: 201202
  25. LOXOPROFEN SODIUM [Concomitant]
     Active Substance: LOXOPROFEN SODIUM
     Dosage: UNK
     Dates: start: 20120427
  26. TRANEXAMIC ACID. [Concomitant]
     Active Substance: TRANEXAMIC ACID
     Dosage: UNK
     Dates: start: 20161110
  27. SELEXIPAG [Suspect]
     Active Substance: SELEXIPAG
     Dosage: 200 ?G, BID
     Route: 048
     Dates: start: 20120605, end: 20120607
  28. SELEXIPAG [Suspect]
     Active Substance: SELEXIPAG
     Dosage: 1000 ?G, BID
     Route: 048
     Dates: start: 20121121, end: 20131208
  29. SELEXIPAG [Suspect]
     Active Substance: SELEXIPAG
     Dosage: 1200 ?G, BID
     Route: 048
     Dates: start: 20131209, end: 20131215
  30. SELEXIPAG [Suspect]
     Active Substance: SELEXIPAG
     Dosage: 1600 ?G, BID
     Route: 048
     Dates: start: 20140722, end: 20140729
  31. SELEXIPAG [Suspect]
     Active Substance: SELEXIPAG
     Dosage: 1400 ?G, BID
     Route: 048
     Dates: start: 20140730, end: 20151016
  32. BOSENTAN. [Suspect]
     Active Substance: BOSENTAN
     Indication: PULMONARY ARTERIAL HYPERTENSION
     Dosage: UNK
     Route: 048
     Dates: start: 201202, end: 20170127
  33. SELEXIPAG [Suspect]
     Active Substance: SELEXIPAG
     Dosage: 400 ?G, BID
     Route: 048
     Dates: start: 20120608, end: 20120611
  34. SELEXIPAG [Suspect]
     Active Substance: SELEXIPAG
     Dosage: 1600 ?G, BID
     Route: 048
     Dates: start: 20120710, end: 20121109
  35. SELEXIPAG [Suspect]
     Active Substance: SELEXIPAG
     Dosage: 1200 ?G, BID
     Route: 048
     Dates: start: 20121119, end: 20121121
  36. SELEXIPAG [Suspect]
     Active Substance: SELEXIPAG
     Dosage: 1400 ?G, BID
     Route: 048
     Dates: start: 20131225, end: 20131227
  37. SELEXIPAG [Suspect]
     Active Substance: SELEXIPAG
     Dosage: 1600 ?G, BID
     Route: 048
     Dates: start: 20140722, end: 20140729
  38. SPIRONOLACTON [Suspect]
     Active Substance: SPIRONOLACTONE
     Indication: PRODUCT USED FOR UNKNOWN INDICATION
     Dosage: UNK
     Route: 048
     Dates: start: 201202
  39. FEBUXOSTAT. [Concomitant]
     Active Substance: FEBUXOSTAT
     Dosage: UNK
     Dates: start: 20130914
  40. MOSAPRIDE CITRATE [Concomitant]
     Active Substance: MOSAPRIDE CITRATE
     Dosage: UNK
     Dates: start: 20160715
  41. SELEXIPAG [Suspect]
     Active Substance: SELEXIPAG
     Dosage: 800 ?G, BID
     Route: 048
     Dates: start: 20120615, end: 20120618
  42. SELEXIPAG [Suspect]
     Active Substance: SELEXIPAG
     Dosage: 1000 ?G, BID
     Route: 048
     Dates: start: 20120619, end: 20120625
  43. SELEXIPAG [Suspect]
     Active Substance: SELEXIPAG
     Dosage: 1200 ?G, BID
     Route: 048
     Dates: start: 20120626, end: 20120702
  44. SELEXIPAG [Suspect]
     Active Substance: SELEXIPAG
     Dosage: 1000 ?G, BID
     Route: 048
     Dates: start: 20121109, end: 20121118
  45. SELEXIPAG [Suspect]
     Active Substance: SELEXIPAG
     Dosage: 1400 ?G, BID
     Route: 048
     Dates: start: 20131216, end: 20131220
  46. SELEXIPAG [Suspect]
     Active Substance: SELEXIPAG
     Dosage: 1400 ?G, BID
     Route: 048
     Dates: start: 20131225, end: 20131227
  47. BETAMETHASONE. [Concomitant]
     Active Substance: BETAMETHASONE
  48. OLOPATADINE [Concomitant]
     Active Substance: OLOPATADINE
  49. HEPARINOID [Concomitant]
     Active Substance: CHONDROITIN SULFATE (BOVINE)
  50. SELEXIPAG [Suspect]
     Active Substance: SELEXIPAG
     Dosage: 400 ?G, BID
     Route: 048
     Dates: start: 20120608, end: 20120611
  51. SELEXIPAG [Suspect]
     Active Substance: SELEXIPAG
     Dosage: 600 ?G, BID
     Route: 048
     Dates: start: 20120612, end: 20120614
  52. SELEXIPAG [Suspect]
     Active Substance: SELEXIPAG
     Dosage: 1400 ?G, BID
     Route: 048
     Dates: start: 20120703, end: 20120709
  53. DIFLUPREDNATE [Concomitant]
     Active Substance: DIFLUPREDNATE
  54. DEQUALINIUM CHLORIDE [Concomitant]
     Active Substance: DEQUALINIUM CHLORIDE
     Dosage: UNK
     Dates: start: 20161110
  55. SELEXIPAG [Suspect]
     Active Substance: SELEXIPAG
     Dosage: 600 ?G, BID
     Route: 048
     Dates: start: 20120612, end: 20120614
  56. SELEXIPAG [Suspect]
     Active Substance: SELEXIPAG
     Dosage: 1400 ?G, BID
     Route: 048
     Dates: start: 20120703, end: 20120709
  57. SELEXIPAG [Suspect]
     Active Substance: SELEXIPAG
     Dosage: 1200 ?G, BID
     Route: 048
     Dates: start: 20131220, end: 20131224
  58. SELEXIPAG [Suspect]
     Active Substance: SELEXIPAG
     Dosage: 1400 ?G, BID
     Route: 048
     Dates: start: 20140714, end: 20140721
  59. SELEXIPAG [Suspect]
     Active Substance: SELEXIPAG
     Dosage: 1400 ?G, BID
     Route: 048
     Dates: start: 20140730, end: 20151016
  60. TADALAFIL [Suspect]
     Active Substance: TADALAFIL
     Indication: PULMONARY ARTERIAL HYPERTENSION
     Dosage: UNK
     Route: 048
     Dates: start: 201202
  61. IRSOGLADINE MALEATE [Concomitant]
     Active Substance: IRSOGLADINE MALEATE
     Dosage: UNK
     Dates: start: 201202
  62. DAIOKANZOTO [Concomitant]
     Active Substance: LICORICE ROOT EXTRACT\RHUBARB
     Dosage: UNK
     Dates: start: 20130510
  63. BETAMETHASONE W/CHLORPHENAMINE [Concomitant]
  64. LANSOPRAZOLE. [Concomitant]
     Active Substance: LANSOPRAZOLE
  65. CHLORPHENIRAMINE MALEATE. [Concomitant]
     Active Substance: CHLORPHENIRAMINE MALEATE
     Dosage: UNK
     Dates: start: 20170105
  66. CANDESARTAN [Concomitant]
     Active Substance: CANDESARTAN
     Dosage: UNK
     Dates: start: 20170106

REACTIONS (4)
  - Large intestine polyp [Not Recovered/Not Resolved]
  - Hypotension [Unknown]
  - Presyncope [Unknown]
  - Polypectomy [Recovered/Resolved]

NARRATIVE: CASE EVENT DATE: 20160416
